FAERS Safety Report 6397623-X (Version None)
Quarter: 2009Q4

REPORT INFORMATION
  Report Type: 
  Country: None (occurrence: None)
  Receive Date: 20091012
  Receipt Date: 20091001
  Transmission Date: 20100525
  Serious: Yes (Hospitalization)
  Sender: FDA-Public Use
  Company Number: US-JNJFOC-20091000522

PATIENT
  Age: 5 Year
  Sex: Male

DRUGS (1)
  1. INVEGA [Suspect]
     Indication: ACCIDENTAL EXPOSURE
     Route: 048

REACTIONS (4)
  - ACCIDENTAL DRUG INTAKE BY CHILD [None]
  - ACCIDENTAL OVERDOSE [None]
  - EXTRAPYRAMIDAL DISORDER [None]
  - SINUS TACHYCARDIA [None]
